FAERS Safety Report 11679978 (Version 3)
Quarter: 2015Q4

REPORT INFORMATION
  Report Type: Report from Study
  Country: US (occurrence: US)
  Receive Date: 20151029
  Receipt Date: 20151110
  Transmission Date: 20160304
  Serious: Yes (Death, Other)
  Sender: FDA-Public Use
  Company Number: US-ROCHE-1651378

PATIENT

DRUGS (1)
  1. ALTEPLASE [Suspect]
     Active Substance: ALTEPLASE
     Indication: PRODUCT USED FOR UNKNOWN INDICATION
     Dosage: CATHETER; STRENGTH: BOLUS 2MG PLUS 1MG PER MINUTE; INFUSION RATE WAS SET AT A TOTAL OF 1 MG/HR
     Route: 050

REACTIONS (3)
  - Inflammation [Unknown]
  - Multi-organ failure [Fatal]
  - Gangrene [Unknown]
